FAERS Safety Report 21300635 (Version 1)
Quarter: 2022Q3

REPORT INFORMATION
  Report Type: Spontaneous
  Country: DE (occurrence: DE)
  Receive Date: 20220907
  Receipt Date: 20220907
  Transmission Date: 20221027
  Serious: Yes (Other)
  Sender: FDA-Public Use
  Company Number: DE-NOVARTISPH-NVSC2022DE201127

PATIENT
  Sex: Male

DRUGS (2)
  1. AMITRIPTYLINE [Suspect]
     Active Substance: AMITRIPTYLINE
     Indication: Product used for unknown indication
     Dosage: 75 MG
     Route: 065
  2. DULOXETINE [Suspect]
     Active Substance: DULOXETINE
     Indication: Product used for unknown indication
     Dosage: 30 MG
     Route: 065

REACTIONS (13)
  - Myelitis transverse [Unknown]
  - Neuroborreliosis [Unknown]
  - Pain [Unknown]
  - Fibromyalgia [Unknown]
  - Spinal pain [Unknown]
  - Depression [Unknown]
  - Vitamin D deficiency [Unknown]
  - Hyperuricaemia [Unknown]
  - Blood immunoglobulin G [Unknown]
  - Fatigue [Unknown]
  - Decreased appetite [Not Recovered/Not Resolved]
  - Dizziness [Unknown]
  - Arthropod bite [Unknown]
